FAERS Safety Report 4675303-6 (Version None)
Quarter: 2005Q2

REPORT INFORMATION
  Report Type: 
  Country: None (occurrence: None)
  Receive Date: 20050525
  Receipt Date: 20050516
  Transmission Date: 20051028
  Serious: Yes (Other)
  Sender: FDA-Public Use
  Company Number: 2005075029

PATIENT
  Age: 68 Year
  Sex: Male

DRUGS (5)
  1. LINEZOLID [Suspect]
     Indication: STAPHYLOCOCCAL INFECTION
     Dosage: 1200 MG (600 MG, 2 IN 1 D), INTRAVENOUS
     Route: 042
  2. SALBUTAMOL                      (SALBUTAMOL) [Concomitant]
  3. IPRATROPIUM BROMIDE [Concomitant]
  4. BUDESONIDE            (BUDESONIDE) [Concomitant]
  5. LEVOFLOXACIN [Concomitant]

REACTIONS (1)
  - LEUKOCYTOCLASTIC VASCULITIS [None]
